FAERS Safety Report 6344349-4 (Version None)
Quarter: 2009Q3

REPORT INFORMATION
  Report Type: 
  Country: None (occurrence: None)
  Receive Date: 20090821
  Receipt Date: 20090430
  Transmission Date: 20100115
  Serious: No
  Sender: FDA-Public Use
  Company Number: 8045612

PATIENT
  Age: 33 Year
  Sex: Male
  Weight: 63.5 kg

DRUGS (5)
  1. CIMZIA [Suspect]
     Indication: CROHN'S DISEASE
     Dosage: 400 MG SC
     Route: 058
     Dates: start: 20090402
  2. IMODIUM [Concomitant]
  3. OMEPRAZOLE [Concomitant]
  4. COLAZAL [Concomitant]
  5. FOLIC ACID [Concomitant]

REACTIONS (2)
  - ABDOMINAL PAIN [None]
  - DIARRHOEA [None]
